FAERS Safety Report 8593483-7 (Version None)
Quarter: 2012Q3

REPORT INFORMATION
  Report Type: 
  Country: None (occurrence: None)
  Receive Date: 20120814
  Receipt Date: 20120814
  Transmission Date: 20120928
  Serious: Yes (Death, Other)
  Sender: FDA-Public Use
  Company Number: JP-ABBOTT-11P-087-0726018-00

PATIENT
  Sex: Male
  Weight: 43 kg

DRUGS (9)
  1. ETANERCEPT [Suspect]
     Dates: start: 20110215
  2. ETANERCEPT [Suspect]
     Dates: start: 20110319, end: 20110319
  3. ETANERCEPT [Suspect]
     Dates: start: 20110326, end: 20110326
  4. HUMIRA [Suspect]
     Indication: RHEUMATOID ARTHRITIS
     Route: 058
     Dates: start: 20110415, end: 20110429
  5. ETANERCEPT [Suspect]
     Route: 058
  6. PREDNISOLONE [Suspect]
     Indication: RHEUMATOID ARTHRITIS
     Route: 048
     Dates: start: 20110324, end: 20110504
  7. ETANERCEPT [Suspect]
     Indication: RHEUMATOID ARTHRITIS
     Dates: start: 20090601, end: 20091001
  8. ETANERCEPT [Suspect]
     Dates: start: 20110402, end: 20110402
  9. METHOTREXATE [Suspect]
     Indication: RHEUMATOID ARTHRITIS
     Route: 048
     Dates: start: 20110414, end: 20110421

REACTIONS (14)
  - COUGH [None]
  - HYPOXIA [None]
  - BLOOD PRESSURE DECREASED [None]
  - PNEUMONIA ASPIRATION [None]
  - RESPIRATORY FAILURE [None]
  - URINE OUTPUT DECREASED [None]
  - CARDIO-RESPIRATORY ARREST [None]
  - DECREASED IMMUNE RESPONSIVENESS [None]
  - DECREASED APPETITE [None]
  - HAEMOTHORAX [None]
  - PYREXIA [None]
  - DEPRESSED LEVEL OF CONSCIOUSNESS [None]
  - PLEURAL INFECTION [None]
  - HYPOPNOEA [None]
